FAERS Safety Report 5362997-5 (Version None)
Quarter: 2007Q2

REPORT INFORMATION
  Report Type: 
  Country: None (occurrence: None)
  Receive Date: 20070615
  Receipt Date: 20070612
  Transmission Date: 20071010
  Serious: Yes (Life-Threatening)
  Sender: FDA-Public Use
  Company Number: 2007S1000124

PATIENT
  Age: 2 Day
  Sex: Female
  Weight: 0.72 kg

DRUGS (8)
  1. NITRIC OXIDE [Suspect]
     Indication: LUNG DISORDER
     Dosage: 5 PPM; CONT; INH
     Route: 055
     Dates: start: 20070608
  2. NITRIC OXIDE [Suspect]
     Indication: PROPHYLAXIS
     Dosage: 5 PPM; CONT; INH
     Route: 055
     Dates: start: 20070608
  3. INSULIN [Concomitant]
  4. ATROPINE [Concomitant]
  5. CLAFORAN [Concomitant]
  6. GENTAMICIN [Concomitant]
  7. MORPHINE [Concomitant]
  8. CLAMOXYL /NET/ [Concomitant]

REACTIONS (5)
  - GASTRIC INFECTION [None]
  - HYPERGLYCAEMIA [None]
  - INTRAVENTRICULAR HAEMORRHAGE [None]
  - NEONATAL DISORDER [None]
  - STREPTOCOCCAL INFECTION [None]
